FAERS Safety Report 11769597 (Version 1)
Quarter: 2015Q4

REPORT INFORMATION
  Report Type: Spontaneous
  Country: None (occurrence: CZ)
  Receive Date: 20151123
  Receipt Date: 20151123
  Transmission Date: 20160304
  Serious: Yes (Other)
  Sender: FDA-Public Use
  Company Number: CZ-MEDAC PHARMA, INC.-1044541

PATIENT
  Age: 13 Year
  Sex: Female

DRUGS (1)
  1. METOJECT [Suspect]
     Active Substance: METHOTREXATE SODIUM

REACTIONS (1)
  - Ototoxicity [Unknown]
